FAERS Safety Report 21894878 (Version 2)
Quarter: 2023Q1

REPORT INFORMATION
  Report Type: Spontaneous
  Country: CN (occurrence: None)
  Receive Date: 20230122
  Receipt Date: 20230313
  Transmission Date: 20230417
  Serious: Yes (Other)
  Sender: FDA-Public Use
  Company Number: CN-ROCHE-3265247

PATIENT
  Age: 47 Year
  Sex: Female

DRUGS (6)
  1. HERCEPTIN [Suspect]
     Active Substance: TRASTUZUMAB
     Indication: Breast cancer
     Dosage: 20-AUG-2021, 10-SEP-2021, 01-OCT-2021, 27-OCT-2021, THP REGIMEN FOR 4 CYCLES
     Route: 065
     Dates: start: 20210820
  2. PERJETA [Suspect]
     Active Substance: PERTUZUMAB
     Indication: Breast cancer
     Dosage: 20-AUG-2021, 10-SEP-2021, 01-OCT-2021, 27-OCT-2021, THP REGIMEN FOR 4 CYCLES
     Route: 065
     Dates: start: 20210820
  3. KADCYLA [Suspect]
     Active Substance: ADO-TRASTUZUMAB EMTANSINE
     Indication: Breast cancer
     Route: 065
  4. CYCLOPHOSPHAMIDE [Concomitant]
     Active Substance: CYCLOPHOSPHAMIDE
     Indication: Breast cancer
     Dosage: 29-MAY-2021, 18-JUN-2021, 09-JUL-2021, 30-JUL-2021, AC REGIMEN FOR 4 CYCLES
     Dates: start: 20210529
  5. DOXORUBICIN [Concomitant]
     Active Substance: DOXORUBICIN
     Indication: Breast cancer
     Dosage: 29-MAY-2021, 18-JUN-2021, 09-JUL-2021, 30-JUL-2021, AC REGIMEN FOR 4 CYCLES
     Dates: start: 20210529
  6. PACLITAXEL [Concomitant]
     Active Substance: PACLITAXEL
     Indication: Breast cancer
     Dosage: 20-AUG-2021, 10-SEP-2021, 01-OCT-2021, 27-OCT-2021, THP REGIMEN FOR 4 CYCLES
     Dates: start: 20210820

REACTIONS (2)
  - Drug-induced liver injury [Unknown]
  - Platelet count decreased [Unknown]
